FAERS Safety Report 15867603 (Version 2)
Quarter: 2019Q1

REPORT INFORMATION
  Report Type: Spontaneous
  Country: AU (occurrence: AU)
  Receive Date: 20190125
  Receipt Date: 20190221
  Transmission Date: 20190417
  Serious: Yes (Death, Hospitalization)
  Sender: FDA-Public Use
  Company Number: AU-ACTELION-A-CH2018-177344

PATIENT
  Age: 70 Year
  Sex: Female
  Weight: 63 kg

DRUGS (6)
  1. SILDENAFIL. [Concomitant]
     Active Substance: SILDENAFIL
     Indication: PULMONARY ARTERIAL HYPERTENSION
     Dosage: 20 MG, TID
     Route: 048
     Dates: start: 20180604, end: 20190208
  2. VENTAVIS [Concomitant]
     Active Substance: ILOPROST
     Indication: PULMONARY ARTERIAL HYPERTENSION
     Dosage: 5 MCG, Q4HRS
     Route: 055
     Dates: start: 201805
  3. VENTAVIS [Concomitant]
     Active Substance: ILOPROST
     Dosage: 5 MCG, Q4HRS
     Route: 055
     Dates: start: 20180604, end: 20190208
  4. SILDENAFIL. [Concomitant]
     Active Substance: SILDENAFIL
     Dosage: 25 MG, TID
     Route: 048
     Dates: start: 201609
  5. OPSUMIT [Suspect]
     Active Substance: MACITENTAN
     Dosage: 10 MG, OD
     Route: 048
     Dates: start: 20160815
  6. OPSUMIT [Suspect]
     Active Substance: MACITENTAN
     Indication: PULMONARY ARTERIAL HYPERTENSION
     Dosage: 10 MG, OD
     Route: 048
     Dates: start: 20180604, end: 20190208

REACTIONS (5)
  - Right ventricular failure [Recovered/Resolved]
  - Dyspnoea [Recovered/Resolved]
  - Death [Fatal]
  - Concomitant disease aggravated [Recovered/Resolved]
  - Dizziness [Unknown]

NARRATIVE: CASE EVENT DATE: 20180808
